FAERS Safety Report 6196777-8 (Version None)
Quarter: 2009Q2

REPORT INFORMATION
  Report Type: 
  Country: None (occurrence: None)
  Receive Date: 20090520
  Receipt Date: 20090514
  Transmission Date: 20091009
  Serious: Yes (Hospitalization)
  Sender: FDA-Public Use
  Company Number: US-WATSON-2009-03443

PATIENT
  Sex: Female

DRUGS (1)
  1. FERRLECIT [Suspect]
     Indication: IRON DEFICIENCY
     Dosage: 125 MG, SINGLE
     Route: 042
     Dates: start: 20090401, end: 20090401

REACTIONS (6)
  - JOINT SWELLING [None]
  - MUSCULOSKELETAL STIFFNESS [None]
  - OEDEMA PERIPHERAL [None]
  - PAIN [None]
  - SWELLING [None]
  - URTICARIA [None]
